FAERS Safety Report 7110073-3 (Version None)
Quarter: 2010Q4

REPORT INFORMATION
  Report Type: 
  Country: None (occurrence: None)
  Receive Date: 20101118
  Receipt Date: 20101115
  Transmission Date: 20110411
  Serious: Yes (Death, Life-Threatening)
  Sender: FDA-Public Use
  Company Number: JP-BAYER-200912407BYL

PATIENT
  Age: 75 Year
  Sex: Male
  Weight: 57 kg

DRUGS (5)
  1. NEXAVAR [Suspect]
     Indication: HEPATIC NEOPLASM MALIGNANT
     Dosage: UNIT DOSE: 200 MG
     Route: 048
     Dates: start: 20090623, end: 20090702
  2. MOBIC [Concomitant]
     Indication: HEPATIC NEOPLASM MALIGNANT
     Dosage: TOTAL DAILY DOSE: 15 MG  UNIT DOSE: 5 MG
     Route: 048
     Dates: end: 20090715
  3. PROMAC [Concomitant]
     Indication: HEPATIC NEOPLASM MALIGNANT
     Dosage: TOTAL DAILY DOSE: 150 MG  UNIT DOSE: 75 MG
     Route: 048
     Dates: end: 20090715
  4. SEFTAC [Concomitant]
     Dosage: TOTAL DAILY DOSE: 150 MG  UNIT DOSE: 50 MG
     Route: 048
     Dates: end: 20090715
  5. TAKEPRON [Concomitant]
     Dosage: TOTAL DAILY DOSE: 15 MG  UNIT DOSE: 15 MG
     Route: 048
     Dates: end: 20090715

REACTIONS (12)
  - ASCITES [None]
  - DECREASED APPETITE [None]
  - FATIGUE [None]
  - HEPATIC INFARCTION [None]
  - HEPATIC NEOPLASM MALIGNANT [None]
  - HEPATORENAL SYNDROME [None]
  - HYPERKALAEMIA [None]
  - JAUNDICE [None]
  - LIVER DISORDER [None]
  - MALAISE [None]
  - MALIGNANT NEOPLASM PROGRESSION [None]
  - RENAL FAILURE [None]
